FAERS Safety Report 12990208 (Version 1)
Quarter: 2016Q4

REPORT INFORMATION
  Report Type: Spontaneous
  Country: IN (occurrence: IN)
  Receive Date: 20161201
  Receipt Date: 20161201
  Transmission Date: 20170207
  Serious: Yes (Hospitalization)
  Sender: FDA-Public Use
  Company Number: IN-SA-2016SA213354

PATIENT
  Age: 7 Year
  Sex: Male

DRUGS (4)
  1. PRIMAQUINE [Suspect]
     Active Substance: PRIMAQUINE PHOSPHATE
     Indication: PLASMODIUM VIVAX INFECTION
     Route: 065
  2. CHLOROQUINE. [Suspect]
     Active Substance: CHLOROQUINE
     Indication: PLASMODIUM VIVAX INFECTION
     Route: 065
  3. CHLOROQUINE. [Suspect]
     Active Substance: CHLOROQUINE
     Indication: PLASMODIUM VIVAX INFECTION
     Route: 065
  4. PRIMAQUINE [Suspect]
     Active Substance: PRIMAQUINE PHOSPHATE
     Indication: PLASMODIUM VIVAX INFECTION
     Route: 065

REACTIONS (12)
  - Chromaturia [Unknown]
  - Methaemoglobinaemia [Recovered/Resolved]
  - Cyanosis [Recovered/Resolved]
  - Fatigue [Unknown]
  - Haemoglobin decreased [Recovering/Resolving]
  - Splenomegaly [Unknown]
  - Haemolysis [Recovering/Resolving]
  - Pallor [Unknown]
  - Jaundice [Unknown]
  - Ocular icterus [Unknown]
  - Hypotension [Unknown]
  - Oxygen saturation decreased [Recovered/Resolved]
